FAERS Safety Report 4815535-7 (Version None)
Quarter: 2005Q4

REPORT INFORMATION
  Report Type: 
  Country: None (occurrence: None)
  Receive Date: 20051027
  Receipt Date: 20051018
  Transmission Date: 20060501
  Serious: Yes (Hospitalization, Other)
  Sender: FDA-Public Use
  Company Number: 2005103691

PATIENT
  Age: 31 Year
  Sex: Female

DRUGS (2)
  1. DEPO-PROVERA [Suspect]
     Indication: CONTRACEPTION
     Dosage: 150 MG (150 MG, 1ST INJECTION, TRIMESTRAL); 150 MG (150 MG, MOST RECENT INJECTION, TRIMESTRAL)
     Dates: start: 20050216, end: 20050216
  2. DEPO-PROVERA [Suspect]
     Indication: CONTRACEPTION
     Dosage: 150 MG (150 MG, 1ST INJECTION, TRIMESTRAL); 150 MG (150 MG, MOST RECENT INJECTION, TRIMESTRAL)
     Dates: start: 20050803, end: 20050803

REACTIONS (4)
  - GALLBLADDER OPERATION [None]
  - MENORRHAGIA [None]
  - POST PROCEDURAL COMPLICATION [None]
  - STRESS [None]
